FAERS Safety Report 8304273-4 (Version None)
Quarter: 2012Q2

REPORT INFORMATION
  Report Type: 
  Country: None (occurrence: None)
  Receive Date: 20120423
  Receipt Date: 20120419
  Transmission Date: 20120825
  Serious: Yes (Other)
  Sender: FDA-Public Use
  Company Number: PHHO2012BE005591

PATIENT
  Sex: Female
  Weight: 100 kg

DRUGS (2)
  1. TAMOXIFEN CITRATE [Suspect]
     Dosage: 20 MG, QD
     Route: 048
     Dates: start: 20090122, end: 20110118
  2. LETROZOLE [Suspect]
     Indication: BREAST CANCER
     Dosage: 2.5 MG, QD
     Route: 048
     Dates: start: 20110119

REACTIONS (2)
  - METASTASES TO LIVER [None]
  - COLORECTAL CANCER [None]
